FAERS Safety Report 22653632 (Version 2)
Quarter: 2024Q1

REPORT INFORMATION
  Report Type: Spontaneous
  Country: US (occurrence: US)
  Receive Date: 20230629
  Receipt Date: 20240216
  Transmission Date: 20240410
  Serious: No
  Sender: FDA-Public Use
  Company Number: US-AJANTA-2023AJA00094

PATIENT
  Age: 60 Year
  Sex: Male

DRUGS (2)
  1. SILDENAFIL [Suspect]
     Active Substance: SILDENAFIL
     Indication: Erectile dysfunction
  2. SILDENAFIL [Suspect]
     Active Substance: SILDENAFIL
     Dosage: 6 PILLS

REACTIONS (3)
  - Product substitution issue [Unknown]
  - Drug ineffective for unapproved indication [Unknown]
  - Overdose [Unknown]
